FAERS Safety Report 25840110 (Version 1)
Quarter: 2025Q3

REPORT INFORMATION
  Report Type: Spontaneous
  Country: CO (occurrence: CO)
  Receive Date: 20250924
  Receipt Date: 20250924
  Transmission Date: 20251021
  Serious: Yes (Other)
  Sender: BAXTER
  Company Number: None

PATIENT
  Age: 28 Year
  Sex: Female
  Weight: 47.5 kg

DRUGS (2)
  1. IRON SUCROSE [Suspect]
     Active Substance: IRON SUCROSE
     Indication: Iron deficiency
     Dosage: 200 MG, EVERY 2 WK (AMPOULE: 100MG/5ML, 2 UNITS, AT 20 DROP PER MIN SPEED
     Route: 042
     Dates: start: 20250821, end: 20250821
  2. SODIUM CHLORIDE [Suspect]
     Active Substance: SODIUM CHLORIDE
     Route: 042
     Dates: start: 20250821

REACTIONS (6)
  - Hyperhidrosis [Recovered/Resolved]
  - Vessel puncture site pain [Unknown]
  - Flushing [Recovered/Resolved]
  - Nausea [Recovered/Resolved]
  - Vomiting [Recovered/Resolved]
  - Malaise [Recovered/Resolved]

NARRATIVE: CASE EVENT DATE: 20250821
